APPROVED DRUG PRODUCT: ACETAMINOPHEN
Active Ingredient: ACETAMINOPHEN
Strength: 650MG
Dosage Form/Route: TABLET, EXTENDED RELEASE;ORAL
Application: A215486 | Product #001
Applicant: MARKSANS PHARMA LTD
Approved: Aug 25, 2021 | RLD: No | RS: No | Type: OTC